APPROVED DRUG PRODUCT: AZMACORT
Active Ingredient: TRIAMCINOLONE ACETONIDE
Strength: 0.1MG/INH
Dosage Form/Route: AEROSOL, METERED;INHALATION
Application: N018117 | Product #001
Applicant: ABBVIE INC
Approved: Apr 23, 1982 | RLD: No | RS: No | Type: DISCN